FAERS Safety Report 24025828 (Version 1)
Quarter: 2024Q2

REPORT INFORMATION
  Report Type: Report from Study
  Country: IT (occurrence: IT)
  Receive Date: 20240628
  Receipt Date: 20240628
  Transmission Date: 20240715
  Serious: No
  Sender: FDA-Public Use
  Company Number: IT-ROCHE-3185970

PATIENT
  Age: 51 Year
  Sex: Female
  Weight: 92.0 kg

DRUGS (5)
  1. ALECTINIB [Suspect]
     Active Substance: ALECTINIB
     Indication: Non-small cell lung cancer
     Route: 048
     Dates: start: 20220629
  2. DENOSUMAB [Concomitant]
     Active Substance: DENOSUMAB
     Indication: Metastases to bone
     Route: 058
     Dates: start: 20220629
  3. LORLATINIB [Concomitant]
     Active Substance: LORLATINIB
     Dates: start: 20221214
  4. PRAVASTATIN SODIUM [Concomitant]
     Active Substance: PRAVASTATIN SODIUM
     Indication: Hypercholesterolaemia
     Route: 048
     Dates: start: 20230105
  5. CACIT (ITALY) [Concomitant]
     Route: 048
     Dates: start: 20220309, end: 20220825

REACTIONS (1)
  - Asthenia [Recovered/Resolved]

NARRATIVE: CASE EVENT DATE: 20220629
